FAERS Safety Report 4773193-4 (Version None)
Quarter: 2005Q3

REPORT INFORMATION
  Report Type: 
  Country: None (occurrence: None)
  Receive Date: 20050919
  Receipt Date: 20050913
  Transmission Date: 20060218
  Serious: Yes (Death, Life-Threatening, Other)
  Sender: FDA-Public Use
  Company Number: US-MERCK-0509USA02031

PATIENT
  Age: 54 Year
  Sex: Male
  Weight: 82 kg

DRUGS (12)
  1. VIOXX [Suspect]
     Indication: ARTHRITIS
     Route: 048
     Dates: start: 20010101, end: 20030901
  2. VIOXX [Suspect]
     Indication: PAIN MANAGEMENT
     Route: 048
     Dates: start: 20010101, end: 20030901
  3. INSULIN [Concomitant]
     Route: 051
  4. INSULIN [Concomitant]
     Route: 051
  5. NIFEDIPINE [Concomitant]
     Route: 048
  6. NIFEDIPINE [Concomitant]
     Route: 048
  7. GLUCOTROL [Concomitant]
     Route: 048
  8. GLUCOTROL [Concomitant]
     Route: 048
  9. IBUPROFEN [Concomitant]
     Route: 048
  10. IBUPROFEN [Concomitant]
     Route: 048
  11. METOPROLOL [Concomitant]
     Route: 048
  12. METOPROLOL [Concomitant]
     Route: 048

REACTIONS (2)
  - GASTRIC DISORDER [None]
  - MYOCARDIAL INFARCTION [None]
